FAERS Safety Report 8876368 (Version 1)
Quarter: 2012Q4

REPORT INFORMATION
  Report Type: 
  Country: US (occurrence: US)
  Receive Date: 20121031
  Receipt Date: 20121031
  Transmission Date: 20130627
  Serious: Yes (Hospitalization, Other)
  Sender: FDA-Public Use
  Company Number: US-AMGEN-USASP2012068495

PATIENT
  Age: 82 Year
  Sex: Female

DRUGS (5)
  1. PROLIA [Suspect]
     Indication: OSTEOPOROSIS POSTMENOPAUSAL
     Dosage: UNK
     Dates: start: 201209
  2. DIOVAN [Concomitant]
  3. OMEPRAZOLE [Concomitant]
  4. VIIBRYD [Concomitant]
  5. HYDROCODONE [Concomitant]

REACTIONS (5)
  - Haemoglobin decreased [Recovering/Resolving]
  - Chest pain [Recovering/Resolving]
  - Hernia pain [Recovering/Resolving]
  - Nasopharyngitis [Recovering/Resolving]
  - Back pain [Not Recovered/Not Resolved]
